FAERS Safety Report 7877331-6 (Version None)
Quarter: 2011Q4

REPORT INFORMATION
  Report Type: 
  Country: None (occurrence: None)
  Receive Date: 20111031
  Receipt Date: 20111021
  Transmission Date: 20120403
  Serious: Yes (Hospitalization)
  Sender: FDA-Public Use
  Company Number: US-BRISTOL-MYERS SQUIBB COMPANY-16188716

PATIENT

DRUGS (1)
  1. HYDREA [Suspect]

REACTIONS (1)
  - DYSPHAGIA [None]
